FAERS Safety Report 6340439-0 (Version None)
Quarter: 2009Q3

REPORT INFORMATION
  Report Type: 
  Country: None (occurrence: None)
  Receive Date: 20090904
  Receipt Date: 20070530
  Transmission Date: 20100115
  Serious: Yes (Disabling, Other)
  Sender: FDA-Public Use
  Company Number: US-ASTRAZENECA-2006UW21808

PATIENT
  Age: 547 Month
  Sex: Male
  Weight: 80.7 kg

DRUGS (28)
  1. SEROQUEL [Suspect]
     Indication: NERVOUSNESS
     Route: 048
     Dates: start: 20020101
  2. SEROQUEL [Suspect]
     Indication: DEPRESSION
     Route: 048
     Dates: start: 20020101
  3. SEROQUEL [Suspect]
     Indication: AFFECTIVE DISORDER
     Route: 048
     Dates: start: 20020101
  4. SEROQUEL [Suspect]
     Indication: ANXIETY
     Route: 048
     Dates: start: 20020101
  5. SEROQUEL [Suspect]
     Dosage: 25 - 100 MG DAILY
     Route: 048
     Dates: start: 20030515
  6. SEROQUEL [Suspect]
     Dosage: 25 - 100 MG DAILY
     Route: 048
     Dates: start: 20030515
  7. SEROQUEL [Suspect]
     Dosage: 25 - 100 MG DAILY
     Route: 048
     Dates: start: 20030515
  8. SEROQUEL [Suspect]
     Dosage: 25 - 100 MG DAILY
     Route: 048
     Dates: start: 20030515
  9. CLOZARIL [Concomitant]
  10. LORAZEPAM [Concomitant]
     Dates: start: 20060622
  11. SERTRALINE HCL [Concomitant]
  12. ATENOLOL [Concomitant]
     Indication: BLOOD PRESSURE
     Route: 048
     Dates: start: 20020809
  13. CHLORDIAZEPOXIDE [Concomitant]
     Dosage: 50  -150 MG DAILY
     Route: 048
     Dates: start: 20030515
  14. DILTIAZEM [Concomitant]
     Dosage: 120 - 360 MG DAILY
     Route: 048
     Dates: start: 20040411
  15. DILTIAZEM [Concomitant]
     Dosage: STRENGTH - 1 MG/ML
     Dates: start: 20040320
  16. ENOXAPARIN SODIUM [Concomitant]
     Dosage: STRENGTH - 100 MG/ 1 CC, DOSE - 100 MG TWO TIMES A DAY
     Route: 058
     Dates: start: 20040303
  17. CLONIDINE [Concomitant]
     Route: 048
     Dates: start: 20030515
  18. GABAPENTIN [Concomitant]
     Indication: CONVULSION
     Dosage: 300 - 900 MG DAILY
     Route: 048
     Dates: start: 20030205
  19. HYDROCHLOROTHIAZIDE [Concomitant]
     Indication: BLOOD PRESSURE
     Route: 048
     Dates: start: 20020809
  20. HYDROCHLOROTHIAZIDE [Concomitant]
     Indication: DIURETIC THERAPY
     Route: 048
     Dates: start: 20020809
  21. LANSOPRAZOLE [Concomitant]
     Indication: GASTROOESOPHAGEAL REFLUX DISEASE
     Route: 048
     Dates: start: 20020808
  22. OMEPRAZOLE [Concomitant]
     Indication: GASTROOESOPHAGEAL REFLUX DISEASE
     Dosage: 10 - 40 MG DAILY
     Route: 048
     Dates: start: 20040302
  23. NITROGLYCERIN [Concomitant]
     Indication: CHEST PAIN
     Dosage: 0.4 MG UPTO 3 DOSAGE
     Route: 060
     Dates: start: 20020808
  24. HYDROXYZINE HCL [Concomitant]
     Indication: ANXIETY
     Dates: start: 20040303
  25. DIGOXIN [Concomitant]
     Dosage: STRENGTH - 0.25 MG/ 1 ML, DOSE - 0.25 MG / 1 ML DAILY
     Route: 042
     Dates: start: 20040320
  26. PROZAC [Concomitant]
     Dates: start: 20040324
  27. LASIX [Concomitant]
     Dates: start: 20040303
  28. BUSPIRONE HCL [Concomitant]
     Indication: ANXIETY
     Route: 048
     Dates: start: 20030515

REACTIONS (2)
  - DIABETES MELLITUS [None]
  - POLYNEUROPATHY [None]
